FAERS Safety Report 24814879 (Version 1)
Quarter: 2025Q1

REPORT INFORMATION
  Report Type: Spontaneous
  Country: US (occurrence: None)
  Receive Date: 20250106
  Receipt Date: 20250106
  Transmission Date: 20250409
  Serious: No
  Sender: FDA-CTU
  Company Number: None

PATIENT
  Age: 23 Year
  Sex: Female
  Weight: 48.6 kg

DRUGS (6)
  1. PROZAC [Suspect]
     Active Substance: FLUOXETINE HYDROCHLORIDE
     Indication: Depression
     Route: 048
     Dates: start: 20130915, end: 20130920
  2. VYVANSE [Concomitant]
     Active Substance: LISDEXAMFETAMINE DIMESYLATE
  3. KLONOPIN [Concomitant]
     Active Substance: CLONAZEPAM
  4. BACLOFEN [Concomitant]
     Active Substance: BACLOFEN
  5. LEVOTHYROXINE [Concomitant]
     Active Substance: LEVOTHYROXINE
  6. MAGNESIUM [Concomitant]
     Active Substance: MAGNESIUM

REACTIONS (6)
  - Genital anaesthesia [None]
  - Fatigue [None]
  - Anhedonia [None]
  - Photosensitivity reaction [None]
  - Hyperacusis [None]
  - Emotional poverty [None]
